FAERS Safety Report 5200013-6 (Version None)
Quarter: 2007Q1

REPORT INFORMATION
  Report Type: 
  Country: None (occurrence: None)
  Receive Date: 20070105
  Receipt Date: 20070102
  Transmission Date: 20070707
  Serious: Yes (Other)
  Sender: FDA-Public Use
  Company Number: 2006UW27614

PATIENT
  Age: 74 Year
  Sex: Female
  Weight: 44 kg

DRUGS (4)
  1. TAMOXIFEN CITRATE [Suspect]
     Indication: BREAST CANCER
     Route: 048
     Dates: start: 20000101, end: 20050101
  2. GINKO BILOBA [Concomitant]
     Indication: SYNCOPE
     Route: 048
     Dates: start: 20030101
  3. ATENOLOL [Concomitant]
     Indication: HYPERTENSION
     Dosage: }3 YEARS
     Route: 048
  4. TEBONIN [Concomitant]
     Indication: PERIPHERAL VASCULAR DISORDER
     Dosage: }3 YEARS
     Route: 048

REACTIONS (2)
  - DEAFNESS [None]
  - HYPOACUSIS [None]
